FAERS Safety Report 14183383 (Version 2)
Quarter: 2017Q4

REPORT INFORMATION
  Report Type: Spontaneous
  Country: IT (occurrence: IT)
  Receive Date: 20171113
  Receipt Date: 20171211
  Transmission Date: 20180321
  Serious: Yes (Hospitalization, Other)
  Sender: FDA-Public Use
  Company Number: IT-MYLANLABS-2017M1068820

PATIENT
  Age: 67 Year
  Sex: Male

DRUGS (18)
  1. CLOPIDOGREL [Suspect]
     Active Substance: CLOPIDOGREL BISULFATE
     Indication: THROMBOSIS
     Dosage: 75 MG, QD
     Route: 065
     Dates: start: 201412, end: 201504
  2. TICAGRELOR. [Suspect]
     Active Substance: TICAGRELOR
     Indication: THROMBOSIS
     Dosage: 180 MG AS LOADING DOSE, FOLLOWED BY 90MG BID MAINTENANCE DOSE
     Route: 065
     Dates: start: 201602
  3. ASPIRIN                            /00002701/ [Concomitant]
     Active Substance: ASPIRIN
     Indication: THROMBOSIS
     Dosage: 100MG IN DEC 2014
     Route: 065
  4. WARFARIN [Concomitant]
     Active Substance: WARFARIN
     Indication: THROMBOSIS
     Dosage: INR RANGE 2.5-3
     Route: 065
     Dates: end: 201602
  5. CLOPIDOGREL [Suspect]
     Active Substance: CLOPIDOGREL BISULFATE
     Indication: VENTRICULAR ASSIST DEVICE INSERTION
  6. WARFARIN [Concomitant]
     Active Substance: WARFARIN
     Indication: ANTIPLATELET THERAPY
  7. DIPYRIDAMOLE. [Concomitant]
     Active Substance: DIPYRIDAMOLE
     Indication: ANTICOAGULANT THERAPY
     Dosage: 800 QD
     Route: 065
     Dates: start: 2013
  8. ASPIRIN                            /00002701/ [Concomitant]
     Active Substance: ASPIRIN
     Dosage: 300MG; ON HOSPITALISATION IN APR 2014
     Route: 065
     Dates: start: 2013
  9. DIPYRIDAMOLE. [Concomitant]
     Active Substance: DIPYRIDAMOLE
     Indication: THROMBOSIS
     Dosage: 800MG
     Route: 065
  10. ALTEPLASE. [Concomitant]
     Active Substance: ALTEPLASE
     Indication: FIBRINOLYSIS
  11. TIROFIBAN [Concomitant]
     Active Substance: TIROFIBAN
     Indication: THROMBOSIS
     Dosage: 0.1 MCG/KG/MIN FOR 3 DAYS
     Route: 065
     Dates: start: 201508
  12. DIPYRIDAMOLE. [Concomitant]
     Active Substance: DIPYRIDAMOLE
     Indication: ANTIPLATELET THERAPY
  13. CLOPIDOGREL [Suspect]
     Active Substance: CLOPIDOGREL BISULFATE
     Indication: ANTICOAGULANT THERAPY
     Dosage: DOSE WAS 75MG IN JAN 2016 HOSPITALISATION
     Route: 065
     Dates: start: 2015, end: 201602
  14. TICAGRELOR. [Suspect]
     Active Substance: TICAGRELOR
     Indication: ANTICOAGULANT THERAPY
     Dosage: MAINTENANCE DOSE
     Route: 065
     Dates: start: 201602
  15. ALTEPLASE. [Concomitant]
     Active Substance: ALTEPLASE
     Indication: THROMBOSIS
     Dosage: THREE BOLUSES
     Route: 050
  16. ASPIRIN                            /00002701/ [Concomitant]
     Active Substance: ASPIRIN
     Indication: ANTIPLATELET THERAPY
     Dosage: IN FEB 2016
     Route: 065
     Dates: start: 201602
  17. ASPIRIN                            /00002701/ [Concomitant]
     Active Substance: ASPIRIN
     Dosage: LATER INCREASED TO 300MG BY DEC 2014
     Route: 065
     Dates: start: 2013
  18. WARFARIN [Concomitant]
     Active Substance: WARFARIN
     Indication: ANTICOAGULANT THERAPY
     Dosage: DISCHARGE MEDICATION IN SEP 2013
     Route: 065
     Dates: start: 2013

REACTIONS (5)
  - Embolic stroke [Unknown]
  - Haematuria [Unknown]
  - Therapy partial responder [Unknown]
  - Blood lactate dehydrogenase increased [Unknown]
  - Haemorrhage intracranial [Unknown]

NARRATIVE: CASE EVENT DATE: 201602
